FAERS Safety Report 19968142 (Version 1)
Quarter: 2021Q4

REPORT INFORMATION
  Report Type: Spontaneous
  Country: US (occurrence: US)
  Receive Date: 20211019
  Receipt Date: 20211019
  Transmission Date: 20220303
  Serious: No
  Sender: FDA-Public Use
  Company Number: None

PATIENT

DRUGS (3)
  1. AUBAGIO [Suspect]
     Active Substance: TERIFLUNOMIDE
  2. AUBAGIO [Concomitant]
     Active Substance: TERIFLUNOMIDE
  3. KESIMPTA [Suspect]
     Active Substance: OFATUMUMAB

REACTIONS (1)
  - Hepatic enzyme increased [None]
